FAERS Safety Report 5281313-0 (Version None)
Quarter: 2007Q1

REPORT INFORMATION
  Report Type: 
  Country: None (occurrence: None)
  Receive Date: 20061221
  Receipt Date: 20050719
  Transmission Date: 20070707
  Serious: No
  Sender: FDA-Public Use
  Company Number: 2005UW10774

PATIENT

DRUGS (2)
  1. XYLOCAINE [Suspect]
     Dosage: 2% ONCE, IJ
  2. DEPO-MEDROL [Suspect]
     Dosage: 2 ML, ONCE; IJ

REACTIONS (1)
  - URTICARIA [None]
